FAERS Safety Report 9164398 (Version 2)
Quarter: 2013Q2

REPORT INFORMATION
  Report Type: Spontaneous
  Country: US (occurrence: US)
  Receive Date: 20130315
  Receipt Date: 20130510
  Transmission Date: 20140414
  Serious: No
  Sender: FDA-Public Use
  Company Number: US-009507513-1302USA012839

PATIENT
  Sex: Female

DRUGS (2)
  1. COSOPT [Suspect]
     Indication: INTRAOCULAR PRESSURE INCREASED
     Dosage: ONE DROP INTO EACH EYE TWICE A DAY
     Route: 031
     Dates: start: 2012
  2. NATURAL TEARS (HYPROMELLOSE (+) SODIUM CHLORIDE) [Concomitant]

REACTIONS (6)
  - Incorrect dose administered [Unknown]
  - Incorrect dose administered [Unknown]
  - Drug dose omission [Unknown]
  - Product container issue [Unknown]
  - Product container issue [Unknown]
  - No adverse event [Unknown]
